FAERS Safety Report 10340233 (Version 2)
Quarter: 2014Q3

REPORT INFORMATION
  Report Type: Spontaneous
  Country: US (occurrence: US)
  Receive Date: 20140724
  Receipt Date: 20140923
  Transmission Date: 20150326
  Serious: Yes (Life-Threatening, Hospitalization)
  Sender: FDA-Public Use
  Company Number: US-BAYER-2014-109896

PATIENT
  Age: 19 Year
  Sex: Female
  Weight: 57.6 kg

DRUGS (2)
  1. DEPO-PROVERA [Concomitant]
     Active Substance: MEDROXYPROGESTERONE ACETATE
     Dosage: UNK
     Dates: start: 20130419
  2. MIRENA [Suspect]
     Active Substance: LEVONORGESTREL
     Indication: CONTRACEPTION
     Dosage: 20 MCG/24HR, CONT
     Route: 015
     Dates: start: 20120810, end: 20130419

REACTIONS (8)
  - Uterine perforation [None]
  - Infection [None]
  - Procedural pain [None]
  - Scar [None]
  - Injury [None]
  - Medical device discomfort [None]
  - Abdominal pain [None]
  - General physical health deterioration [None]

NARRATIVE: CASE EVENT DATE: 20130419
